FAERS Safety Report 20655185 (Version 1)
Quarter: 2022Q1

REPORT INFORMATION
  Report Type: Spontaneous
  Country: US (occurrence: US)
  Receive Date: 20220330
  Receipt Date: 20220330
  Transmission Date: 20220423
  Serious: No
  Sender: FDA-Public Use
  Company Number: US-BIOGEN-2022BI01110040

PATIENT
  Age: 58 Year
  Sex: Female

DRUGS (1)
  1. TECFIDERA [Suspect]
     Active Substance: DIMETHYL FUMARATE
     Indication: Product used for unknown indication
     Route: 048
     Dates: start: 202107

REACTIONS (3)
  - Abdominal discomfort [Unknown]
  - Vision blurred [Unknown]
  - Dyschromatopsia [Unknown]

NARRATIVE: CASE EVENT DATE: 20210701
